FAERS Safety Report 25116110 (Version 2)
Quarter: 2025Q2

REPORT INFORMATION
  Report Type: Spontaneous
  Country: ES (occurrence: ES)
  Receive Date: 20250325
  Receipt Date: 20250408
  Transmission Date: 20250716
  Serious: No
  Sender: ELI LILLY AND CO
  Company Number: ES-ELI_LILLY_AND_COMPANY-ES202503012079

PATIENT
  Age: 67 Year
  Sex: Female

DRUGS (2)
  1. ABEMACICLIB [Interacting]
     Active Substance: ABEMACICLIB
     Indication: Breast cancer metastatic
     Route: 065
  2. SINTROM [Interacting]
     Active Substance: ACENOCOUMAROL
     Indication: Arrhythmia
     Route: 065

REACTIONS (1)
  - Drug interaction [Unknown]
